FAERS Safety Report 4990947-X (Version None)
Quarter: 2006Q2

REPORT INFORMATION
  Report Type: 
  Country: None (occurrence: None)
  Receive Date: 20060503
  Receipt Date: 20051004
  Transmission Date: 20061013
  Serious: Yes (Hospitalization, Disabling)
  Sender: FDA-Public Use
  Company Number: US-MERCK-0510USA03544

PATIENT
  Age: 58 Year
  Sex: Male
  Weight: 95 kg

DRUGS (4)
  1. VIOXX [Suspect]
     Indication: ARTHROPATHY
     Route: 048
     Dates: start: 20010301, end: 20030728
  2. VIOXX [Suspect]
     Route: 048
     Dates: start: 20010301, end: 20030728
  3. ASPIRIN [Concomitant]
     Route: 065
  4. ADVIL [Concomitant]
     Route: 065

REACTIONS (17)
  - ACUTE MYOCARDIAL INFARCTION [None]
  - ARTHROPATHY [None]
  - BACK PAIN [None]
  - CORONARY ARTERY DISEASE [None]
  - DUPUYTREN'S CONTRACTURE [None]
  - FALL [None]
  - FASCIECTOMY [None]
  - HEPATITIS B [None]
  - HYPERCHOLESTEROLAEMIA [None]
  - HYPERHIDROSIS [None]
  - JOINT INJURY [None]
  - MUSCLE ATROPHY [None]
  - MYOCARDIAL INFARCTION [None]
  - NAUSEA [None]
  - RADIUS FRACTURE [None]
  - TENOSYNOVITIS STENOSANS [None]
  - THYROIDITIS SUBACUTE [None]
